FAERS Safety Report 16345140 (Version 1)
Quarter: 2019Q2

REPORT INFORMATION
  Report Type: Spontaneous
  Country: US (occurrence: US)
  Receive Date: 20190523
  Receipt Date: 20190523
  Transmission Date: 20190711
  Serious: No
  Sender: FDA-Public Use
  Company Number: US-GLAXOSMITHKLINE-US2019089002

PATIENT
  Age: 45 Year
  Sex: Female

DRUGS (1)
  1. FLONASE SENSIMIST ALLERGY RELIEF [Suspect]
     Active Substance: FLUTICASONE FUROATE
     Indication: HYPERSENSITIVITY
     Dosage: 1 SPRAY, QD
     Route: 045
     Dates: start: 20190513

REACTIONS (3)
  - Hypersensitivity [Unknown]
  - Eye irritation [Recovered/Resolved]
  - Drug hypersensitivity [Unknown]
